FAERS Safety Report 8926915 (Version 1)
Quarter: 2012Q4

REPORT INFORMATION
  Report Type: 
  Country: US (occurrence: US)
  Receive Date: 20121127
  Receipt Date: 20121127
  Transmission Date: 20130627
  Serious: No
  Sender: FDA-Public Use
  Company Number: US-JNJFOC-20121111331

PATIENT
  Sex: Female
  Weight: 57.61 kg

DRUGS (6)
  1. UNSPECIFIED FENTANYL TRANSDERMAL SYSTEM [Suspect]
     Indication: BREAKTHROUGH PAIN
     Route: 062
  2. UNSPECIFIED FENTANYL TRANSDERMAL SYSTEM [Suspect]
     Indication: BREAKTHROUGH PAIN
     Route: 062
  3. UNSPECIFIED FENTANYL TRANSDERMAL SYSTEM [Suspect]
     Indication: BREAKTHROUGH PAIN
     Route: 062
  4. UNSPECIFIED FENTANYL TRANSDERMAL SYSTEM [Suspect]
     Indication: BREAKTHROUGH PAIN
     Route: 062
  5. VICODIN [Suspect]
     Indication: BREAKTHROUGH PAIN
     Route: 065
  6. NORCO [Suspect]
     Indication: BREAKTHROUGH PAIN
     Route: 065

REACTIONS (3)
  - Drug ineffective [Not Recovered/Not Resolved]
  - Abdominal pain upper [Not Recovered/Not Resolved]
  - Drug dose omission [Not Recovered/Not Resolved]
